FAERS Safety Report 8073791-9 (Version None)
Quarter: 2012Q1

REPORT INFORMATION
  Report Type: 
  Country: None (occurrence: None)
  Receive Date: 20120126
  Receipt Date: 20120112
  Transmission Date: 20120608
  Serious: Yes (Death, Other)
  Sender: FDA-Public Use
  Company Number: JP-PFIZER INC-2011248619

PATIENT
  Age: 68 Year
  Sex: Male

DRUGS (20)
  1. EDARAVONE [Suspect]
     Indication: THROMBOTIC CEREBRAL INFARCTION
     Dosage: 30 MG, 1X/DAY
     Route: 041
     Dates: start: 20110910, end: 20110910
  2. LANSOPRAZOLE [Concomitant]
     Indication: PROPHYLAXIS AGAINST GASTROINTESTINAL ULCER
     Dosage: 30 MG, UNK
     Route: 051
     Dates: start: 20110910, end: 20110910
  3. BASEN [Concomitant]
     Indication: DIABETES MELLITUS
     Dosage: .6 MG, UNK
     Route: 048
     Dates: start: 20110915, end: 20110925
  4. GLYCEOL [Concomitant]
     Indication: BRAIN OEDEMA
     Dosage: 400 ML, UNK
     Route: 051
     Dates: start: 20110920, end: 20110925
  5. HUMULIN R [Concomitant]
     Indication: DIABETES MELLITUS
     Dosage: 10 IU, UNK
     Route: 051
     Dates: start: 20110924, end: 20110924
  6. HUMULIN R [Concomitant]
     Dosage: 16 IU, UNK
     Route: 051
     Dates: start: 20110925, end: 20110925
  7. ARGATROBAN [Suspect]
     Indication: THROMBOTIC CEREBRAL INFARCTION
     Dosage: 60 MG, UNK
     Route: 041
     Dates: start: 20110912, end: 20110913
  8. PLAVIX [Suspect]
     Indication: THROMBOTIC CEREBRAL INFARCTION
     Dosage: 75 MG, UNK
     Route: 048
     Dates: start: 20110915, end: 20110923
  9. ANTI-DIABETICS [Concomitant]
     Indication: DIABETES MELLITUS
     Route: 048
  10. HUMULIN R [Concomitant]
     Dosage: 2 IU, UNK
     Route: 051
     Dates: start: 20110928, end: 20110928
  11. CEFAMEZIN ^FUJISAWA^ [Concomitant]
     Indication: INFECTION PROPHYLAXIS
     Dosage: 2 G, UNK
     Route: 051
     Dates: start: 20110925, end: 20110928
  12. GRTPA [Suspect]
     Indication: THROMBOTIC CEREBRAL INFARCTION
     Dosage: 44.7 ML, 1X/DAY
     Route: 042
     Dates: start: 20110910
  13. INSULIN [Concomitant]
     Indication: DIABETES MELLITUS
     Route: 051
  14. LANSOPRAZOLE [Concomitant]
     Dosage: 15 MG, UNK
     Route: 048
     Dates: start: 20110915, end: 20110925
  15. DEXTRAN 40 + GLUKOS [Concomitant]
     Indication: CEREBRAL THROMBOSIS
     Dosage: 500 ML, UNK
     Route: 051
     Dates: start: 20110911, end: 20110915
  16. MANNITOL [Concomitant]
     Indication: BRAIN OEDEMA
     Dosage: 600 ML, UNK
     Route: 051
     Dates: start: 20110926, end: 20110928
  17. URALYT [Concomitant]
     Dosage: 3 TABLETS
     Route: 048
     Dates: start: 20110915, end: 20110925
  18. EDARAVONE [Suspect]
     Dosage: 30 MG, 2X/DAY
     Route: 041
     Dates: start: 20110911, end: 20110923
  19. ARGATROBAN [Suspect]
     Dosage: 20 MG, UNK
     Route: 041
     Dates: start: 20110914, end: 20110917
  20. LANSOPRAZOLE [Concomitant]
     Dosage: 60 MG, UNK
     Route: 051
     Dates: start: 20110911, end: 20110914

REACTIONS (1)
  - HAEMORRHAGIC CEREBRAL INFARCTION [None]
